FAERS Safety Report 6420547-6 (Version None)
Quarter: 2009Q4

REPORT INFORMATION
  Report Type: 
  Country: None (occurrence: None)
  Receive Date: 20091027
  Receipt Date: 20091014
  Transmission Date: 20100525
  Serious: Yes (Hospitalization)
  Sender: FDA-Public Use
  Company Number: 2009AL006669

PATIENT
  Age: 71 Year
  Sex: Female

DRUGS (8)
  1. NAPROXEN [Suspect]
     Indication: OSTEOARTHRITIS
     Dosage: 250 MG;BID;PO
     Route: 048
  2. DETRUSITOL [Concomitant]
  3. FUROSEMIDE [Concomitant]
  4. LISINOPRIL [Concomitant]
  5. DOXYCYCLINE [Concomitant]
  6. LEVOTHYROXINE SODIUM [Concomitant]
  7. ADALAT [Concomitant]
  8. METHYLTESTOSTERONE [Concomitant]

REACTIONS (2)
  - GASTRIC ULCER [None]
  - HYPOCHROMIC ANAEMIA [None]
